FAERS Safety Report 8429900-2 (Version None)
Quarter: 2012Q2

REPORT INFORMATION
  Report Type: 
  Country: None (occurrence: None)
  Receive Date: 20120612
  Receipt Date: 20120604
  Transmission Date: 20120825
  Serious: Yes (Life-Threatening, Hospitalization)
  Sender: FDA-Public Use
  Company Number: JP-ASTRAZENECA-2012SE28593

PATIENT
  Age: 42 Year
  Sex: Male
  Weight: 61 kg

DRUGS (12)
  1. CANDESARTAN CILEXETIL [Suspect]
     Indication: HYPERTENSION
     Route: 048
     Dates: end: 20120418
  2. LANSOPRAZOLE [Suspect]
     Indication: PROPHYLAXIS AGAINST GASTROINTESTINAL ULCER
     Route: 048
     Dates: start: 20120308, end: 20120418
  3. PREDNISOLONE [Suspect]
     Route: 042
  4. COTRIM [Suspect]
     Indication: INFECTION PROPHYLAXIS
     Dosage: 1 DF TWO TIMES A DAY
     Route: 048
     Dates: start: 20120308, end: 20120418
  5. PREDNISOLONE [Suspect]
     Indication: IGA NEPHROPATHY
     Route: 048
  6. LIVALO [Suspect]
     Indication: DYSLIPIDAEMIA
     Route: 048
     Dates: end: 20120418
  7. PREDNISOLONE [Suspect]
     Indication: IGA NEPHROPATHY
     Route: 042
     Dates: start: 20120308
  8. ONEALFA [Suspect]
     Indication: OSTEOPOROSIS PROPHYLAXIS
     Route: 048
     Dates: start: 20120308, end: 20120418
  9. PREDNISOLONE [Suspect]
     Route: 048
  10. FEBURIC [Suspect]
     Indication: HYPERURICAEMIA
     Route: 048
     Dates: start: 20120126, end: 20120418
  11. PREDNISOLONE [Suspect]
     Route: 048
     Dates: end: 20120418
  12. ATELEC [Suspect]
     Indication: HYPERTENSION
     Route: 048
     Dates: end: 20120418

REACTIONS (4)
  - AGRANULOCYTOSIS [None]
  - ABDOMINAL PAIN UPPER [None]
  - SEPTIC SHOCK [None]
  - BLOOD PRESSURE DECREASED [None]
